FAERS Safety Report 9960350 (Version 4)
Quarter: 2015Q4

REPORT INFORMATION
  Report Type: Report from Study
  Country: JP (occurrence: JP)
  Receive Date: 20140305
  Receipt Date: 20151130
  Transmission Date: 20160305
  Serious: Yes (Death, Other)
  Sender: FDA-Public Use
  Company Number: JP-OTSUKA-JP-2014-11979

PATIENT

DRUGS (12)
  1. LASIX M [Suspect]
     Active Substance: FUROSEMIDE
     Indication: CARDIAC FAILURE
     Dosage: 10 MG, DAILY DOSE
     Route: 042
     Dates: start: 20120701, end: 20120701
  2. GLUCOSE [Concomitant]
     Active Substance: DEXTROSE
     Indication: PROPHYLAXIS
  3. BFLUID [Concomitant]
     Active Substance: AMINO ACIDS\DEXTROSE\ELECTROLYTES NOS\VITAMINS
     Indication: PRODUCT USED FOR UNKNOWN INDICATION
     Dosage: 1000 ML, DAILY DOSE
     Route: 042
     Dates: start: 20120705, end: 20120705
  4. TOLVAPTAN [Suspect]
     Active Substance: TOLVAPTAN
     Indication: FLUID RETENTION
     Dosage: 3.75 MG, QD, IN THE MORNING
     Route: 048
     Dates: start: 20120625, end: 20120725
  5. LASIX [Suspect]
     Active Substance: FUROSEMIDE
     Indication: CARDIAC FAILURE
     Dosage: 40 MG, DAILY DOSE
     Route: 048
     Dates: end: 20120628
  6. LASIX [Suspect]
     Active Substance: FUROSEMIDE
     Dosage: 20 MG, UNK
     Route: 048
     Dates: start: 20120630, end: 20120729
  7. WARFARIN K [Concomitant]
     Active Substance: WARFARIN POTASSIUM
     Indication: CARDIAC FAILURE
     Dosage: 0.5 MG, UNK
     Route: 048
  8. AMIODARONE HYDROCHLORIDE. [Concomitant]
     Active Substance: AMIODARONE HYDROCHLORIDE
     Indication: CARDIAC FAILURE
     Dosage: 100 MG, UNK
     Route: 048
  9. BFLUID [Concomitant]
     Active Substance: AMINO ACIDS\DEXTROSE\ELECTROLYTES NOS\VITAMINS
     Dosage: 500 ML, DAILY DOSE
     Route: 042
     Dates: start: 20120706, end: 20120728
  10. ALDACTONE A [Concomitant]
     Active Substance: SPIRONOLACTONE
     Indication: CARDIAC FAILURE
     Dosage: 25 MG/DAY
     Route: 048
     Dates: start: 20120629, end: 20120729
  11. GLUCOSE [Concomitant]
     Active Substance: DEXTROSE
     Indication: PRODUCT USED FOR UNKNOWN INDICATION
     Dosage: 500 ML, DAILY DOSE
     Route: 042
     Dates: end: 20120715
  12. LASIX [Suspect]
     Active Substance: FUROSEMIDE
     Dosage: 60 MG, UNK
     Route: 048
     Dates: start: 20120629, end: 20120629

REACTIONS (3)
  - Dehydration [Recovered/Resolved]
  - Blood urea increased [Not Recovered/Not Resolved]
  - Sepsis [Fatal]

NARRATIVE: CASE EVENT DATE: 20120705
